FAERS Safety Report 5752847-7 (Version None)
Quarter: 2008Q2

REPORT INFORMATION
  Report Type: 
  Country: None (occurrence: None)
  Receive Date: 20080529
  Receipt Date: 20080521
  Transmission Date: 20081010
  Serious: No
  Sender: FDA-Public Use
  Company Number: BR-BAXTER-2008BH005347

PATIENT
  Age: 78 Year
  Sex: Female

DRUGS (4)
  1. ALBUMIN (HUMAN) [Suspect]
     Indication: HEPATIC CIRRHOSIS
     Route: 042
     Dates: start: 20080427, end: 20080429
  2. ALBUMIN (HUMAN) [Suspect]
     Route: 042
     Dates: start: 20080417, end: 20080422
  3. ALBUMIN (HUMAN) [Suspect]
     Route: 042
     Dates: start: 20080414, end: 20080415
  4. ALBUMIN (HUMAN) [Suspect]
     Route: 042
     Dates: start: 20080411, end: 20080411

REACTIONS (1)
  - TREMOR [None]
